FAERS Safety Report 5217645-1 (Version None)
Quarter: 2006Q4

REPORT INFORMATION
  Report Type: 
  Country: None (occurrence: None)
  Receive Date: 20061130
  Receipt Date: 20060922
  Transmission Date: 20070319
  Serious: Yes (Other)
  Sender: FDA-Public Use
  Company Number: US200512003909

PATIENT
  Age: 38 Year
  Sex: Male
  Weight: 97.5 kg

DRUGS (24)
  1. ZYPREXA [Suspect]
     Indication: SCHIZOPHRENIA
     Dosage: SEE IMAGE
     Dates: start: 19980224, end: 19980325
  2. ZYPREXA [Suspect]
     Indication: SCHIZOPHRENIA
     Dosage: SEE IMAGE
     Dates: start: 19980325, end: 19981005
  3. ZYPREXA [Suspect]
     Indication: SCHIZOPHRENIA
     Dosage: SEE IMAGE
     Dates: start: 19981005, end: 20001213
  4. ZYPREXA [Suspect]
     Indication: SCHIZOPHRENIA
     Dosage: SEE IMAGE
     Dates: start: 20001213, end: 20010905
  5. ZYPREXA [Suspect]
     Indication: SCHIZOPHRENIA
     Dosage: SEE IMAGE
     Dates: start: 20010905, end: 20020426
  6. ZYPREXA [Suspect]
     Indication: SCHIZOPHRENIA
     Dosage: SEE IMAGE
     Dates: start: 20020426, end: 20031002
  7. ZYPREXA [Suspect]
     Indication: SCHIZOPHRENIA
     Dosage: SEE IMAGE
     Dates: start: 20031002, end: 20031007
  8. ZYPREXA [Suspect]
     Indication: SCHIZOPHRENIA
     Dosage: SEE IMAGE
     Dates: start: 20031007, end: 20040805
  9. ZYPREXA [Suspect]
     Indication: SCHIZOPHRENIA
     Dosage: SEE IMAGE
     Dates: start: 19960101
  10. PROZAC [Concomitant]
  11. PAXIL [Concomitant]
  12. NAVANE [Concomitant]
  13. LORAZEPAM [Concomitant]
  14. VALIUM [Concomitant]
  15. TRAZODONE HCL [Concomitant]
  16. ARTANE [Concomitant]
  17. ABILIFY [Concomitant]
  18. ZOLOFT [Concomitant]
  19. LOTENSIN [Concomitant]
  20. LONITEN [Concomitant]
  21. POTASSIUM (POTASSIUM) [Concomitant]
  22. NORVASC [Concomitant]
  23. PRINZIDE [Concomitant]
  24. LIPITOR [Concomitant]

REACTIONS (3)
  - DIABETES MELLITUS NON-INSULIN-DEPENDENT [None]
  - PRESCRIBED OVERDOSE [None]
  - WEIGHT INCREASED [None]
